FAERS Safety Report 7641902-2 (Version None)
Quarter: 2011Q3

REPORT INFORMATION
  Report Type: 
  Country: None (occurrence: None)
  Receive Date: 20110728
  Receipt Date: 20110722
  Transmission Date: 20111222
  Serious: Yes (Death)
  Sender: FDA-Public Use
  Company Number: DK-ROXANE LABORATORIES, INC.-2011-RO-01046RO

PATIENT
  Age: 45 Year

DRUGS (6)
  1. QUETIAPINE [Suspect]
  2. KETOBEMIDONE [Suspect]
  3. LEVOMEPROMAZINE [Suspect]
  4. AMLODIPINE BESYLATE [Suspect]
  5. CODEINE SUL TAB [Suspect]
  6. SALICYLIC ACID [Suspect]

REACTIONS (1)
  - DEATH [None]
